FAERS Safety Report 17673585 (Version 1)
Quarter: 2020Q2

REPORT INFORMATION
  Report Type: Spontaneous
  Country: ES (occurrence: ES)
  Receive Date: 20200415
  Receipt Date: 20200415
  Transmission Date: 20200714
  Serious: Yes (Hospitalization, Other)
  Sender: FDA-Public Use
  Company Number: ES-SA-2020SA096823

PATIENT
  Age: 68 Year
  Sex: Male
  Weight: 63 kg

DRUGS (3)
  1. FLUOROURACIL. [Suspect]
     Active Substance: FLUOROURACIL
     Indication: RECTAL CANCER
     Dosage: UNK UNK, QOW
     Route: 042
     Dates: start: 20160707, end: 20161227
  2. ZALTRAP [Suspect]
     Active Substance: ZIV-AFLIBERCEPT
     Indication: RECTAL CANCER
     Dosage: UNK UNK, QOW
     Route: 042
     Dates: start: 20160804, end: 20161227
  3. IRINOTECAN [Suspect]
     Active Substance: IRINOTECAN
     Indication: RECTAL CANCER
     Dosage: UNK UNK, QOW
     Route: 042
     Dates: start: 20160804, end: 20161227

REACTIONS (4)
  - Enteritis [Recovered/Resolved]
  - Rectal haemorrhage [Recovered/Resolved]
  - Rectal ulcer [Recovered/Resolved]
  - Diarrhoea [Recovered/Resolved]

NARRATIVE: CASE EVENT DATE: 20161219
